FAERS Safety Report 7693625-1 (Version None)
Quarter: 2011Q3

REPORT INFORMATION
  Report Type: 
  Country: None (occurrence: None)
  Receive Date: 20110819
  Receipt Date: 20110809
  Transmission Date: 20111222
  Serious: Yes (Hospitalization)
  Sender: FDA-Public Use
  Company Number: JP-ROCHE-744147

PATIENT
  Age: 55 Year
  Sex: Female

DRUGS (4)
  1. METHOTREXATE [Concomitant]
     Dosage: DOSE FORM: PERORAL AGENT
     Route: 048
  2. CELECOXIB [Concomitant]
     Route: 048
  3. ACTEMRA [Suspect]
     Indication: RHEUMATOID ARTHRITIS
     Dosage: NOTE: DOSAGE IS UNCERTAIN
     Route: 041
  4. PREDNISOLONE [Concomitant]
     Route: 048

REACTIONS (5)
  - ENDOCARDITIS [None]
  - SKIN ULCER [None]
  - SEPSIS [None]
  - ARTHRITIS BACTERIAL [None]
  - THROMBOTIC CEREBRAL INFARCTION [None]
